FAERS Safety Report 6290675-7 (Version None)
Quarter: 2009Q3

REPORT INFORMATION
  Report Type: 
  Country: None (occurrence: None)
  Receive Date: 20090730
  Receipt Date: 20090721
  Transmission Date: 20100115
  Serious: Yes (Hospitalization, Other)
  Sender: FDA-Public Use
  Company Number: PHEH2009US07910

PATIENT
  Age: 65 Year
  Sex: Male

DRUGS (6)
  1. LESCOL [Suspect]
     Dosage: UNK
     Dates: start: 20070101, end: 20090101
  2. FLOMAX [Suspect]
     Indication: BENIGN PROSTATIC HYPERPLASIA
     Dosage: 0.4 MG, UNK
     Route: 048
     Dates: start: 20070101
  3. ASPIRIN [Suspect]
     Dosage: UNK
     Dates: start: 20060101, end: 20090601
  4. RANITIDINE [Suspect]
     Dosage: UNK
     Dates: start: 20060101
  5. COPAXONE [Suspect]
  6. MAVIK [Suspect]

REACTIONS (5)
  - ANGIOEDEMA [None]
  - CALCULUS BLADDER [None]
  - TRANSIENT ISCHAEMIC ATTACK [None]
  - URINARY TRACT INFECTION [None]
  - URTICARIA [None]
